FAERS Safety Report 9246708 (Version 2)
Quarter: 2013Q2

REPORT INFORMATION
  Report Type: Spontaneous
  Country: IN (occurrence: IN)
  Receive Date: 20130422
  Receipt Date: 20130508
  Transmission Date: 20140414
  Serious: Yes (Death)
  Sender: FDA-Public Use
  Company Number: IN-BRISTOL-MYERS SQUIBB COMPANY-18792341

PATIENT
  Age: 48 Year
  Sex: Male

DRUGS (1)
  1. BARACLUDE TABS 0.5 MG [Suspect]
     Dates: start: 20110525, end: 20130222

REACTIONS (3)
  - Bleeding varicose vein [Fatal]
  - Encephalopathy [Fatal]
  - Portal hypertension [Fatal]
